FAERS Safety Report 11734523 (Version 3)
Quarter: 2015Q4

REPORT INFORMATION
  Report Type: Report from Study
  Country: JP (occurrence: JP)
  Receive Date: 20151113
  Receipt Date: 20151203
  Transmission Date: 20160304
  Serious: Yes (Other)
  Sender: FDA-Public Use
  Company Number: JP-SHIRE-JP201300019

PATIENT
  Age: 6 Year
  Sex: Male

DRUGS (12)
  1. TULOBUTEROL [Concomitant]
     Active Substance: TULOBUTEROL
     Indication: BRONCHITIS
     Dosage: 1 MG, 1X/DAY:QD
     Route: 065
     Dates: start: 20101119, end: 20101125
  2. IDURSULFASE [Suspect]
     Active Substance: IDURSULFASE
     Dosage: 12 MG, 1X/WEEK
     Route: 041
     Dates: start: 2011
  3. CYPROHEPTADINE HYDROCHLORIDE. [Concomitant]
     Active Substance: CYPROHEPTADINE HYDROCHLORIDE
     Dosage: UNK
  4. CYPROHEPTADINE HYDROCHLORIDE. [Concomitant]
     Active Substance: CYPROHEPTADINE HYDROCHLORIDE
     Indication: RHINORRHOEA
     Dosage: 5 MG, 3X/DAY:TID
     Route: 048
     Dates: start: 20110428, end: 20110503
  5. CARBOCISTEINE [Concomitant]
     Active Substance: CARBOCYSTEINE
     Indication: BRONCHITIS
     Dosage: 750 MG, 3X/DAY:TID
     Route: 048
     Dates: start: 20101119, end: 20101125
  6. AMBROXOL HYDROCHLORIDE [Concomitant]
     Active Substance: AMBROXOL HYDROCHLORIDE
     Dosage: 25 MG, 3X/DAY:TID
     Route: 048
     Dates: start: 20110428, end: 20110503
  7. ACETAMINOPHEN. [Concomitant]
     Active Substance: ACETAMINOPHEN
     Indication: BRONCHITIS
     Dosage: 250 MG, AS REQ^D
     Route: 048
     Dates: start: 20101119, end: 20101125
  8. CYPROHEPTADINE HYDROCHLORIDE. [Concomitant]
     Active Substance: CYPROHEPTADINE HYDROCHLORIDE
     Indication: BRONCHITIS
     Dosage: 5 MG, 3X/DAY:TID
     Route: 048
     Dates: start: 20101119, end: 20101125
  9. AMBROXOL HYDROCHLORIDE [Concomitant]
     Active Substance: AMBROXOL HYDROCHLORIDE
     Indication: BRONCHITIS
     Dosage: 25 MG, 3X/DAY:TID
     Route: 048
     Dates: start: 20101119, end: 20101125
  10. TULOBUTEROL [Concomitant]
     Active Substance: TULOBUTEROL
     Dosage: 1 MG, 1X/DAY:QD
     Route: 065
     Dates: start: 20110428, end: 20110503
  11. IDURSULFASE [Suspect]
     Active Substance: IDURSULFASE
     Indication: MUCOPOLYSACCHARIDOSIS II
     Dosage: 12 MG, 1X/WEEK
     Route: 041
     Dates: start: 20090703, end: 20110210
  12. CARBOCISTEINE [Concomitant]
     Active Substance: CARBOCYSTEINE
     Dosage: 750 MG, 3X/DAY:TID
     Route: 048
     Dates: start: 20110428, end: 20110503

REACTIONS (3)
  - Retinal degeneration [Not Recovered/Not Resolved]
  - Deafness [Not Recovered/Not Resolved]
  - Hyperbilirubinaemia [Recovered/Resolved]

NARRATIVE: CASE EVENT DATE: 20100127
